FAERS Safety Report 4797468-8 (Version None)
Quarter: 2005Q4

REPORT INFORMATION
  Report Type: 
  Country: None (occurrence: None)
  Receive Date: 20051013
  Receipt Date: 20051003
  Transmission Date: 20060501
  Serious: Yes (Hospitalization)
  Sender: FDA-Public Use
  Company Number: FR-GILEAD-2005-0008764

PATIENT
  Age: 47 Year
  Sex: Male

DRUGS (3)
  1. HEPSERA [Suspect]
     Indication: HEPATITIS B
     Route: 048
     Dates: start: 20050117, end: 20050303
  2. HEPSERA [Suspect]
     Route: 048
     Dates: end: 20050117
  3. CLAMOXYL [Concomitant]
     Route: 048
     Dates: start: 20050217, end: 20050225

REACTIONS (2)
  - CONDITION AGGRAVATED [None]
  - RENAL FAILURE [None]
